FAERS Safety Report 16723123 (Version 2)
Quarter: 2019Q3

REPORT INFORMATION
  Report Type: Spontaneous
  Country: JP (occurrence: JP)
  Receive Date: 20190821
  Receipt Date: 20190913
  Transmission Date: 20191005
  Serious: Yes (Hospitalization, Other)
  Sender: FDA-Public Use
  Company Number: JP-REGENERON PHARMACEUTICALS, INC.-2019-48433

PATIENT

DRUGS (3)
  1. EYLEA [Suspect]
     Active Substance: AFLIBERCEPT
     Indication: AGE-RELATED MACULAR DEGENERATION
     Dosage: 2 MG (0.05 ML), ONCE, LEFT EYE
     Route: 031
     Dates: start: 20180627, end: 20180627
  2. EYLEA [Suspect]
     Active Substance: AFLIBERCEPT
     Dosage: 2 MG (0.05 ML), ONCE, LEFT EYE
     Route: 031
     Dates: start: 20190731, end: 20190731
  3. EYLEA [Suspect]
     Active Substance: AFLIBERCEPT
     Dosage: 2 MG (0.05 ML), ONCE, RIGHT EYE
     Route: 031
     Dates: start: 20190807, end: 20190807

REACTIONS (4)
  - Cerebral infarction [Recovered/Resolved with Sequelae]
  - Cerebral haemorrhage [Recovered/Resolved with Sequelae]
  - Hemiparesis [Unknown]
  - Dyslalia [Unknown]

NARRATIVE: CASE EVENT DATE: 20190810
